FAERS Safety Report 5102861-X (Version None)
Quarter: 2006Q3

REPORT INFORMATION
  Report Type: 
  Country: None (occurrence: None)
  Receive Date: 20060912
  Receipt Date: 20060831
  Transmission Date: 20061208
  Serious: Yes (Hospitalization)
  Sender: FDA-Public Use
  Company Number: US-SANOFI-SYNTHELABO-A03200605499

PATIENT
  Sex: Male

DRUGS (2)
  1. PLAVIX [Suspect]
     Indication: CORONARY ARTERY BYPASS
     Dosage: UNK
     Route: 048
  2. ASPIRIN [Suspect]
     Indication: CORONARY ARTERY BYPASS
     Dosage: UNK
     Route: 048

REACTIONS (2)
  - FALL [None]
  - HAEMORRHAGE INTRACRANIAL [None]
